FAERS Safety Report 14847312 (Version 12)
Quarter: 2019Q3

REPORT INFORMATION
  Report Type: Spontaneous
  Country: CA (occurrence: CA)
  Receive Date: 20180504
  Receipt Date: 20190725
  Transmission Date: 20191004
  Serious: Yes (Other)
  Sender: FDA-Public Use
  Company Number: CA-CELLTRION INC.-2018CA019591

PATIENT

DRUGS (29)
  1. COLESTID [Concomitant]
     Active Substance: COLESTIPOL HYDROCHLORIDE
     Dosage: 2 G, 2X/DAY
  2. VENLAFAXINE XR [Concomitant]
     Active Substance: VENLAFAXINE HYDROCHLORIDE
     Dosage: 75 MG, 1X/DAY
  3. ACT CIPROFLOXACIN [Concomitant]
     Active Substance: CIPROFLOXACIN
     Dosage: UNK
  4. METRONIDAZOLE. [Concomitant]
     Active Substance: METRONIDAZOLE
     Indication: CELLULITIS
     Dosage: 500 MG, TID
     Route: 048
  5. CORTISONE [Concomitant]
     Active Substance: CORTISONE
     Dosage: UNK
  6. INFLECTRA [Suspect]
     Active Substance: INFLIXIMAB-DYYB
     Dosage: 5 MG/KG, 0, 2, 6, THEN EVERY 8 WEEKS
     Route: 042
     Dates: start: 20190107
  7. ROGAINE [Concomitant]
     Active Substance: MINOXIDIL
     Dosage: 5% APPLY 1 ML SOLUTION ON SCALP
  8. ACT BUPROPION XL [Concomitant]
     Active Substance: BUPROPION
     Dosage: 300 MG, 1X/DAY
  9. INFLECTRA [Suspect]
     Active Substance: INFLIXIMAB-DYYB
     Indication: CROHN^S DISEASE
     Dosage: 5 MG/KG, 0, 2, 6, THEN EVERY 8 WEEKS
     Route: 042
     Dates: start: 20180413, end: 20180413
  10. PMS ZOPICLONE [Concomitant]
     Indication: INSOMNIA
     Dosage: 1/2 TO 1-7.5 MG TABLET DAILY
  11. PMS CLONAZEPAM [Concomitant]
     Dosage: 1/2 TO 1-1 MG TAB 1X/DAY AS NEEDED
  12. INFLECTRA [Suspect]
     Active Substance: INFLIXIMAB-DYYB
     Dosage: 5 MG/KG, 0, 2, 6, THEN EVERY 8 WEEKS
     Route: 042
     Dates: start: 20190502, end: 20190502
  13. INFLECTRA [Suspect]
     Active Substance: INFLIXIMAB-DYYB
     Dosage: 5 MG/KG, 0, 2, 6, THEN EVERY 8 WEEKS
     Route: 042
     Dates: start: 20180426, end: 20180426
  14. INFLECTRA [Suspect]
     Active Substance: INFLIXIMAB-DYYB
     Dosage: 6.13 MG/KG (500 MG), 0, 2, 6, THEN EVERY 8 WEEKS
     Route: 042
     Dates: start: 20181108
  15. VIAGRA [Concomitant]
     Active Substance: SILDENAFIL CITRATE
     Dosage: 1/2 TO 1 TABLET OF 100 MG BEFORE SEXUAL ACTIVITY
  16. BIO K PLUS [Concomitant]
     Dosage: 1/4 OF BOTTLE 1X/DAY AS NEEDED
  17. INFLECTRA [Suspect]
     Active Substance: INFLIXIMAB-DYYB
     Dosage: 5 MG/KG, 0, 2, 6, THEN EVERY 8 WEEKS
     Route: 042
     Dates: start: 20180719, end: 20180719
  18. MINT RISPERIDON [Concomitant]
     Dosage: 0.5 MG, 1X/DAY AT BEDTIME
  19. VITAMIN B12 [Concomitant]
     Active Substance: CYANOCOBALAMIN
     Dosage: 250 MG, 1X/DAY
     Route: 048
  20. METRONIDAZOLE. [Concomitant]
     Active Substance: METRONIDAZOLE
     Dosage: UNK
  21. INFLECTRA [Suspect]
     Active Substance: INFLIXIMAB-DYYB
     Dosage: 5 MG/KG, 0, 2, 6, THEN EVERY 8 WEEKS
     Route: 042
     Dates: start: 20180913
  22. INFLECTRA [Suspect]
     Active Substance: INFLIXIMAB-DYYB
     Dosage: 700 MG EVERY 8 WEEKS
     Route: 042
     Dates: start: 20190627
  23. PMS-LOPERAMIDE [Concomitant]
     Indication: DIARRHOEA
     Dosage: 2 MG 2X/DAY AS NEEDED
  24. AZATHIOPRINE TEVA [Concomitant]
     Active Substance: AZATHIOPRINE
     Dosage: 50 MG X 4
     Dates: start: 20180404
  25. INFLECTRA [Suspect]
     Active Substance: INFLIXIMAB-DYYB
     Dosage: 5 MG/KG, 0, 2, 6, THEN EVERY 8 WEEKS
     Route: 042
     Dates: start: 20180525, end: 20180525
  26. INFLECTRA [Suspect]
     Active Substance: INFLIXIMAB-DYYB
     Dosage: 5 MG/KG, 0, 2, 6, THEN EVERY 8 WEEKS
     Route: 042
     Dates: start: 20190307
  27. ACT CIPROFLOXACIN [Concomitant]
     Active Substance: CIPROFLOXACIN
     Indication: CELLULITIS
     Dosage: 500 MG, 2X/DAY EVERY 12 H
     Route: 048
  28. PMS-HYDROMORPHONE [Concomitant]
     Active Substance: HYDROMORPHONE HYDROCHLORIDE
     Indication: PAIN
     Dosage: 1 MG, AS NEEDED EVERY 3 H
  29. PMS CELECOXIB [Concomitant]
     Dosage: 100 MG, 2X/DAY

REACTIONS (11)
  - Alopecia [Unknown]
  - Vein rupture [Unknown]
  - Post procedural infection [Recovering/Resolving]
  - Off label use [Unknown]
  - Blood pressure fluctuation [Unknown]
  - Staphylococcal infection [Recovering/Resolving]
  - Poor venous access [Not Recovered/Not Resolved]
  - Migraine [Unknown]
  - Herpes zoster [Recovering/Resolving]
  - Condition aggravated [Recovering/Resolving]
  - Intentional product use issue [Unknown]

NARRATIVE: CASE EVENT DATE: 20180413
